FAERS Safety Report 6747183-6 (Version None)
Quarter: 2010Q2

REPORT INFORMATION
  Report Type: 
  Country: None (occurrence: None)
  Receive Date: 20100528
  Receipt Date: 20100517
  Transmission Date: 20101027
  Serious: Yes (Other)
  Sender: FDA-Public Use
  Company Number: US-PFIZER INC-2010036058

PATIENT
  Sex: Female
  Weight: 71.202 kg

DRUGS (2)
  1. VERAPAMIL HCL [Suspect]
     Indication: SUPRAVENTRICULAR TACHYCARDIA
     Dosage: 240 MG, DAILY
     Dates: start: 19940101
  2. ANASTROZOLE [Concomitant]
     Dosage: UNK
     Dates: start: 20030101, end: 20080101

REACTIONS (7)
  - ANXIETY [None]
  - BLOOD PRESSURE INCREASED [None]
  - BREAST CANCER [None]
  - CAROTID ARTERY OCCLUSION [None]
  - PANIC ATTACK [None]
  - RAYNAUD'S PHENOMENON [None]
  - TINNITUS [None]
